FAERS Safety Report 7361646-4 (Version None)
Quarter: 2011Q1

REPORT INFORMATION
  Report Type: 
  Country: None (occurrence: None)
  Receive Date: 20110318
  Receipt Date: 20110309
  Transmission Date: 20110831
  Serious: No
  Sender: FDA-Public Use
  Company Number: JP-JNJFOC-20110305806

PATIENT
  Age: 70 Year
  Sex: Male

DRUGS (3)
  1. VOLTAREN [Concomitant]
     Route: 054
  2. LOXONIN [Concomitant]
     Route: 065
  3. DUROTEP MT [Suspect]
     Indication: CANCER PAIN
     Route: 062

REACTIONS (2)
  - HYPERVENTILATION [None]
  - DRUG PRESCRIBING ERROR [None]
